FAERS Safety Report 6654698-8 (Version None)
Quarter: 2010Q1

REPORT INFORMATION
  Report Type: 
  Country: None (occurrence: None)
  Receive Date: 20100326
  Receipt Date: 20100323
  Transmission Date: 20100710
  Serious: Yes (Hospitalization)
  Sender: FDA-Public Use
  Company Number: US-GILEAD-2010-0028081

PATIENT
  Sex: Male
  Weight: 118 kg

DRUGS (16)
  1. LETAIRIS [Suspect]
     Indication: PULMONARY ARTERIAL HYPERTENSION
     Route: 048
     Dates: start: 20090218
  2. REMODULIN [Suspect]
     Indication: PULMONARY ARTERIAL HYPERTENSION
     Route: 058
  3. REVATIO [Concomitant]
  4. LASIX [Concomitant]
  5. METOLAZONE [Concomitant]
  6. SPIRONOLACTONE [Concomitant]
  7. COREG [Concomitant]
  8. TOPAMAX [Concomitant]
  9. LYRICA [Concomitant]
  10. TRILIPIX [Concomitant]
  11. NOVOLOG [Concomitant]
  12. WELLBUTRIN [Concomitant]
  13. SELENIUM [Concomitant]
  14. KLOR-CON [Concomitant]
  15. ALLOPURINOL [Concomitant]
  16. CENTRUM SILVER [Concomitant]

REACTIONS (1)
  - CELLULITIS [None]
